FAERS Safety Report 17350636 (Version 1)
Quarter: 2020Q1

REPORT INFORMATION
  Report Type: Spontaneous
  Country: DE (occurrence: DE)
  Receive Date: 20200130
  Receipt Date: 20200130
  Transmission Date: 20200409
  Serious: Yes (Hospitalization)
  Sender: FDA-Public Use
  Company Number: DE-MYLANLABS-2020M1010356

PATIENT
  Age: 62 Year
  Sex: Female
  Weight: 58 kg

DRUGS (3)
  1. PEGFILGRASTIM [Suspect]
     Active Substance: PEGFILGRASTIM
     Dosage: STRENGTH: 6 MG
     Route: 058
     Dates: start: 20191002
  2. PEGFILGRASTIM [Suspect]
     Active Substance: PEGFILGRASTIM
     Indication: PRODUCT USED FOR UNKNOWN INDICATION
     Dosage: STRENGTH: 6 MG
     Route: 058
     Dates: start: 20190823
  3. PEGFILGRASTIM [Suspect]
     Active Substance: PEGFILGRASTIM
     Dosage: STRENGTH: 6 MG
     Route: 058
     Dates: start: 20190913

REACTIONS (1)
  - Renal abscess [Not Recovered/Not Resolved]

NARRATIVE: CASE EVENT DATE: 20191022
